FAERS Safety Report 7031629-2 (Version None)
Quarter: 2010Q4

REPORT INFORMATION
  Report Type: 
  Country: None (occurrence: None)
  Receive Date: 20101006
  Receipt Date: 20101006
  Transmission Date: 20110411
  Serious: Yes (Death, Hospitalization)
  Sender: FDA-Public Use
  Company Number: None

PATIENT
  Sex: Male
  Weight: 56 kg

DRUGS (4)
  1. FLUOROURACIL [Suspect]
     Dosage: 4460 MG
     Dates: end: 20100921
  2. BEVACIZUMAB (RHUMAB VEGF) [Suspect]
     Dosage: 282 MG
     Dates: end: 20100921
  3. LEUCOVORIN CALCIUM [Suspect]
     Dosage: 640 MG
     Dates: end: 20100921
  4. ELOXATIN [Suspect]
     Dosage: 136 MG
     Dates: end: 20100921

REACTIONS (11)
  - BACTERIAL TEST POSITIVE [None]
  - BLOOD CREATININE INCREASED [None]
  - CHRONIC OBSTRUCTIVE PULMONARY DISEASE [None]
  - DEHYDRATION [None]
  - ELECTROLYTE IMBALANCE [None]
  - HYPOCALCAEMIA [None]
  - HYPONATRAEMIA [None]
  - HYPOPHOSPHATAEMIA [None]
  - PSEUDOMONAS INFECTION [None]
  - RESPIRATORY ARREST [None]
  - RESPIRATORY FAILURE [None]
